FAERS Safety Report 22394376 (Version 2)
Quarter: 2023Q2

REPORT INFORMATION
  Report Type: Spontaneous
  Country: US (occurrence: US)
  Receive Date: 20230601
  Receipt Date: 20230628
  Transmission Date: 20230721
  Serious: Yes (Other)
  Sender: FDA-Public Use
  Company Number: US-BRISTOL-MYERS SQUIBB COMPANY-2023-075394

PATIENT
  Age: 75 Year
  Sex: Male

DRUGS (2)
  1. REVLIMID [Suspect]
     Active Substance: LENALIDOMIDE
     Indication: Plasma cell myeloma
     Dosage: TAKE 1 CAPSULE BY MOUTH EVERY DAY FOR 21 DAYS. THEN 7 DAYS OFF. EVERY 28 DAY CYCLE
     Route: 048
     Dates: start: 20221110, end: 202212
  2. REVLIMID [Suspect]
     Active Substance: LENALIDOMIDE
     Dosage: TAKE 1 CAPSULE BY MOUTH EVERY DAY FOR 21 DAYS. THEN 7 DAYS OFF. EVERY 28 DAY CYCLE
     Route: 048
     Dates: start: 202303

REACTIONS (2)
  - Muscle spasms [Not Recovered/Not Resolved]
  - Plasma cell myeloma [Not Recovered/Not Resolved]
